FAERS Safety Report 8418412-8 (Version None)
Quarter: 2012Q2

REPORT INFORMATION
  Report Type: 
  Country: None (occurrence: None)
  Receive Date: 20120607
  Receipt Date: 20120604
  Transmission Date: 20120825
  Serious: Yes (Other)
  Sender: FDA-Public Use
  Company Number: US-PFIZER INC-2012134188

PATIENT
  Sex: Female
  Weight: 68 kg

DRUGS (5)
  1. LYRICA [Suspect]
     Indication: EPILEPSY
     Dosage: ONE 100MG  CAPSULE IN THE MORNING AND TWO CAPSULES OF 100MG AT NIGHT
     Route: 048
     Dates: start: 20070101
  2. CELEXA [Concomitant]
     Indication: DEPRESSION
     Dosage: UNK
  3. ABILIFY [Concomitant]
     Indication: DEPRESSION
     Dosage: UNK
  4. LACOSAMIDE [Concomitant]
     Dosage: UNK
  5. TRAZODONE [Concomitant]
     Dosage: UNK

REACTIONS (3)
  - MEMORY IMPAIRMENT [None]
  - DEMENTIA [None]
  - WEIGHT INCREASED [None]
